FAERS Safety Report 4878239-0 (Version None)
Quarter: 2006Q1

REPORT INFORMATION
  Report Type: 
  Country: None (occurrence: None)
  Receive Date: 20060111
  Receipt Date: 20051214
  Transmission Date: 20060701
  Serious: Yes (Hospitalization)
  Sender: FDA-Public Use
  Company Number: US-MERCK-0512USA02357

PATIENT
  Age: 61 Year
  Sex: Female
  Weight: 118 kg

DRUGS (2)
  1. VIOXX [Suspect]
     Indication: ARTHRITIS
     Route: 048
     Dates: start: 19991124, end: 20011105
  2. VIOXX [Suspect]
     Route: 048
     Dates: start: 19991124, end: 20011105

REACTIONS (2)
  - ARTHROPATHY [None]
  - CEREBROVASCULAR ACCIDENT [None]
